FAERS Safety Report 7583446-2 (Version None)
Quarter: 2011Q2

REPORT INFORMATION
  Report Type: 
  Country: None (occurrence: None)
  Receive Date: 20110630
  Receipt Date: 20110620
  Transmission Date: 20111010
  Serious: Yes (Hospitalization)
  Sender: FDA-Public Use
  Company Number: US-SANOFI-AVENTIS-2011SA039200

PATIENT
  Age: 61 Year
  Sex: Female

DRUGS (5)
  1. LEUCOVORIN CALCIUM [Suspect]
     Indication: RECTAL CANCER
     Route: 042
     Dates: start: 20100406
  2. FLUOROURACIL [Suspect]
     Indication: RECTAL CANCER
     Route: 042
     Dates: start: 20110406
  3. BEVACIZUMAB [Suspect]
     Indication: RECTAL CANCER
     Route: 065
     Dates: start: 20100406
  4. OXALIPLATIN [Suspect]
     Indication: RECTAL CANCER
     Dosage: CYCLIC DOSE ON DAY 1, 8, 15, 22, 29 DURING RADIATION THERAPY.
     Route: 042
     Dates: start: 20100406
  5. CAPECITABINE [Suspect]
     Indication: RECTAL CANCER
     Route: 048
     Dates: start: 20100406

REACTIONS (3)
  - DIARRHOEA [None]
  - DEHYDRATION [None]
  - HYPERKALAEMIA [None]
